FAERS Safety Report 4989595-7 (Version None)
Quarter: 2006Q2

REPORT INFORMATION
  Report Type: 
  Country: None (occurrence: None)
  Receive Date: 20060502
  Receipt Date: 20051110
  Transmission Date: 20061013
  Serious: Yes (Hospitalization, Other)
  Sender: FDA-Public Use
  Company Number: US-MERCK-0511USA02074

PATIENT
  Age: 79 Year
  Sex: Female
  Weight: 57 kg

DRUGS (27)
  1. VIOXX [Suspect]
     Indication: RHEUMATOID ARTHRITIS
     Route: 048
     Dates: start: 20000101, end: 20031001
  2. VIOXX [Suspect]
     Indication: OSTEOARTHRITIS
     Route: 048
     Dates: start: 20000101, end: 20031001
  3. ASPIRIN [Concomitant]
     Route: 065
     Dates: start: 20030416, end: 20051121
  4. ZOCOR [Concomitant]
     Route: 065
     Dates: start: 20000806
  5. COZAAR [Concomitant]
     Route: 065
     Dates: start: 20000313, end: 20050928
  6. PRILOSEC [Concomitant]
     Route: 065
  7. ATENOLOL [Concomitant]
     Route: 065
     Dates: start: 19970901, end: 20020517
  8. CLORAZEPATE DIPOTASSIUM [Concomitant]
     Route: 065
     Dates: start: 20000209, end: 20011028
  9. ULTRAM [Concomitant]
     Route: 065
     Dates: start: 20010215
  10. PLAVIX [Concomitant]
     Route: 065
     Dates: start: 20030401, end: 20050101
  11. AMIODARONE HYDROCHLORIDE [Concomitant]
     Route: 065
     Dates: start: 20030416, end: 20040101
  12. COUMADIN [Concomitant]
     Route: 065
     Dates: start: 20030416
  13. ALEVE [Concomitant]
     Route: 065
  14. TYLENOL (CAPLET) [Concomitant]
     Route: 065
     Dates: start: 19900101
  15. TYLENOL W/ CODEINE NO. 3 [Concomitant]
     Route: 065
     Dates: start: 19900101
  16. TRAMADOLOR [Concomitant]
     Route: 065
  17. LIPITOR [Concomitant]
     Route: 065
     Dates: start: 20030201, end: 20031009
  18. MICARDIS [Concomitant]
     Route: 065
     Dates: start: 20010904, end: 20020517
  19. CARDENE [Concomitant]
     Route: 065
     Dates: start: 19970814
  20. CARDIZEM [Concomitant]
     Route: 065
     Dates: start: 20030408, end: 20050928
  21. NORVASC [Concomitant]
     Route: 065
     Dates: start: 19990319
  22. LOTREL [Concomitant]
     Route: 065
     Dates: start: 20010413, end: 20010904
  23. CARDURA [Concomitant]
     Route: 065
     Dates: start: 20000209, end: 20010326
  24. FUROSEMIDE [Concomitant]
     Route: 065
     Dates: start: 20020517, end: 20021010
  25. DYAZIDE [Concomitant]
     Route: 065
     Dates: start: 20000816, end: 20010221
  26. TRAMADOL HYDROCHLORIDE [Concomitant]
     Route: 065
  27. PREVACID [Suspect]
     Route: 065

REACTIONS (36)
  - ABDOMINAL PAIN [None]
  - ACCELERATED HYPERTENSION [None]
  - APHASIA [None]
  - ATRIAL FIBRILLATION [None]
  - CARDIOVASCULAR DISORDER [None]
  - CAROTID ARTERY STENOSIS [None]
  - CATARACT [None]
  - CEREBROVASCULAR ACCIDENT [None]
  - COORDINATION ABNORMAL [None]
  - DIARRHOEA [None]
  - DILATATION ATRIAL [None]
  - DIVERTICULITIS [None]
  - DIZZINESS [None]
  - FALL [None]
  - GASTROOESOPHAGEAL REFLUX DISEASE [None]
  - HEADACHE [None]
  - HEPATIC CYST [None]
  - HEPATIC ENZYME INCREASED [None]
  - HEPATIC INFARCTION [None]
  - HEPATOMEGALY [None]
  - HYPOKALAEMIA [None]
  - HYPONATRAEMIA [None]
  - LOSS OF CONSCIOUSNESS [None]
  - MITRAL VALVE INCOMPETENCE [None]
  - PAIN IN EXTREMITY [None]
  - PITUITARY TUMOUR [None]
  - RATHKE'S CLEFT CYST [None]
  - REFLUX OESOPHAGITIS [None]
  - REFUSAL OF TREATMENT BY PATIENT [None]
  - RENAL ARTERY STENOSIS [None]
  - SPINAL COLUMN STENOSIS [None]
  - THYROID MASS [None]
  - TRANSIENT ISCHAEMIC ATTACK [None]
  - TRICUSPID VALVE INCOMPETENCE [None]
  - URINARY TRACT INFECTION [None]
  - VENTRICULAR HYPERTROPHY [None]
